FAERS Safety Report 14840076 (Version 6)
Quarter: 2019Q4

REPORT INFORMATION
  Report Type: Spontaneous
  Country: AU (occurrence: AU)
  Receive Date: 20180503
  Receipt Date: 20191227
  Transmission Date: 20200122
  Serious: Yes (Other)
  Sender: FDA-Public Use
  Company Number: AU-REGENERON PHARMACEUTICALS, INC.-2018-22469

PATIENT

DRUGS (5)
  1. EYLEA [Suspect]
     Active Substance: AFLIBERCEPT
     Dosage: 0.3 ML
  2. EYLEA [Suspect]
     Active Substance: AFLIBERCEPT
     Dosage: 0.5 DF, ONCE
     Dates: start: 2018, end: 2018
  3. EYLEA [Suspect]
     Active Substance: AFLIBERCEPT
     Indication: DIABETIC RETINOPATHY
     Dosage: UNK
     Dates: start: 2015
  4. EYLEA [Suspect]
     Active Substance: AFLIBERCEPT
     Dosage: 0.5 DF, ONCE
     Dates: start: 2018, end: 2018
  5. EYLEA [Suspect]
     Active Substance: AFLIBERCEPT
     Dosage: 0.5 DF, ONCE
     Dates: start: 2018, end: 2018

REACTIONS (6)
  - Incorrect dose administered [Unknown]
  - Anxiety [Unknown]
  - Product quality issue [Unknown]
  - Blindness transient [Recovered/Resolved]
  - Blindness transient [Recovered/Resolved]
  - Intraocular pressure increased [Recovered/Resolved]

NARRATIVE: CASE EVENT DATE: 2018
